FAERS Safety Report 7397475-5 (Version None)
Quarter: 2011Q1

REPORT INFORMATION
  Report Type: 
  Country: None (occurrence: None)
  Receive Date: 20110328
  Receipt Date: 20110321
  Transmission Date: 20110831
  Serious: Yes (Hospitalization, Disabling, Other)
  Sender: FDA-Public Use
  Company Number: 2009-189370-NL

PATIENT
  Age: 31 Year
  Sex: Female
  Weight: 106.6 kg

DRUGS (5)
  1. NUVARING [Suspect]
     Indication: CONTRACEPTION
     Dosage: 1 DF QM, VAG
     Route: 067
     Dates: start: 20060601, end: 20061201
  2. SINGULAIR [Concomitant]
  3. SYNTHROID [Concomitant]
  4. ALBUTEROL [Concomitant]
  5. LEVOXYL [Concomitant]

REACTIONS (7)
  - THROMBOSIS [None]
  - RHINITIS ALLERGIC [None]
  - DEEP VEIN THROMBOSIS [None]
  - OVARIAN MASS [None]
  - OVARIAN CYST RUPTURED [None]
  - MENISCUS LESION [None]
  - CONJUNCTIVITIS ALLERGIC [None]
